FAERS Safety Report 12898001 (Version 1)
Quarter: 2016Q4

REPORT INFORMATION
  Report Type: Spontaneous
  Country: US (occurrence: US)
  Receive Date: 20161031
  Receipt Date: 20161031
  Transmission Date: 20170207
  Serious: No
  Sender: FDA-Public Use
  Company Number: US-PFIZER INC-3170944

PATIENT
  Age: 81 Year
  Sex: Female
  Weight: 55.91 kg

DRUGS (1)
  1. DOBUTAMINE HCL [Suspect]
     Active Substance: DOBUTAMINE HYDROCHLORIDE
     Indication: STRESS ECHOCARDIOGRAM
     Dosage: 250 MG/KG/MIN
     Route: 042
     Dates: start: 20160126

REACTIONS (1)
  - Drug ineffective [Recovered/Resolved]

NARRATIVE: CASE EVENT DATE: 20160126
